FAERS Safety Report 20107158 (Version 2)
Quarter: 2022Q1

REPORT INFORMATION
  Report Type: Spontaneous
  Country: GB (occurrence: GB)
  Receive Date: 20211124
  Receipt Date: 20220304
  Transmission Date: 20220424
  Serious: Yes (Hospitalization)
  Sender: FDA-Public Use
  Company Number: GB-AMGEN-GBRSP2021181884

PATIENT
  Sex: Female

DRUGS (1)
  1. ARANESP [Suspect]
     Active Substance: DARBEPOETIN ALFA
     Indication: Product used for unknown indication
     Dosage: 100 MICROGRAM, Q2WK
     Route: 065

REACTIONS (5)
  - Peripheral swelling [Unknown]
  - Transfusion [Unknown]
  - Mobility decreased [Unknown]
  - Fall [Unknown]
  - Tremor [Unknown]
